FAERS Safety Report 10213988 (Version 2)
Quarter: 2014Q4

REPORT INFORMATION
  Report Type: Spontaneous
  Country: FR (occurrence: None)
  Receive Date: 20140529
  Receipt Date: 20141015
  Transmission Date: 20150528
  Serious: Yes (Other)
  Sender: FDA-Public Use
  Company Number: FR-015799

PATIENT
  Age: 86 Year
  Sex: Male

DRUGS (1)
  1. FIRMAGON [Suspect]
     Active Substance: DEGARELIX ACETATE
     Indication: PROSTATE CANCER
     Dosage: 80 MG 1X/MONTH
     Route: 058
     Dates: start: 20130210

REACTIONS (6)
  - Nausea [None]
  - Injection site erythema [None]
  - Chills [None]
  - Injection site pain [None]
  - Body temperature increased [None]
  - Hyperaesthesia [None]

NARRATIVE: CASE EVENT DATE: 20140510
